FAERS Safety Report 8404946-9 (Version None)
Quarter: 2012Q2

REPORT INFORMATION
  Report Type: 
  Country: None (occurrence: None)
  Receive Date: 20120601
  Receipt Date: 20120516
  Transmission Date: 20120825
  Serious: No
  Sender: FDA-Public Use
  Company Number: US-ASTRAZENECA-2012SE28939

PATIENT
  Age: 51 Year
  Sex: Female

DRUGS (4)
  1. NEXIUM [Suspect]
     Route: 048
     Dates: start: 20050101
  2. PRILOSEC [Suspect]
     Route: 048
  3. PRILOSEC [Suspect]
     Route: 048
     Dates: start: 20120101
  4. VALIUM [Concomitant]

REACTIONS (12)
  - ADVERSE EVENT [None]
  - DIARRHOEA [None]
  - DRUG INEFFECTIVE [None]
  - NASOPHARYNGITIS [None]
  - CHEST PAIN [None]
  - ABDOMINAL DISCOMFORT [None]
  - OROPHARYNGEAL DISCOMFORT [None]
  - GASTRIC POLYPS [None]
  - PSORIATIC ARTHROPATHY [None]
  - LIVER DISORDER [None]
  - ABDOMINAL PAIN UPPER [None]
  - INTENTIONAL DRUG MISUSE [None]
